FAERS Safety Report 7022180-4 (Version None)
Quarter: 2010Q3

REPORT INFORMATION
  Report Type: 
  Country: None (occurrence: None)
  Receive Date: 20100930
  Receipt Date: 20100928
  Transmission Date: 20110219
  Serious: Yes (Death, Other)
  Sender: FDA-Public Use
  Company Number: PHHY2009CA13578

PATIENT
  Sex: Female

DRUGS (1)
  1. SANDOSTATIN LAR [Suspect]
     Indication: CARCINOID TUMOUR
     Dosage: 30 MG, QW2
     Route: 030
     Dates: start: 20051103, end: 20090408

REACTIONS (2)
  - DEATH [None]
  - MALIGNANT NEOPLASM PROGRESSION [None]
